FAERS Safety Report 5512361-0 (Version None)
Quarter: 2007Q4

REPORT INFORMATION
  Report Type: 
  Country: None (occurrence: None)
  Receive Date: 20071108
  Receipt Date: 20071026
  Transmission Date: 20080405
  Serious: Yes (Hospitalization)
  Sender: FDA-Public Use
  Company Number: ALK_00441_2007

PATIENT
  Sex: 0

DRUGS (1)
  1. VIVITROL [Suspect]
     Indication: ALCOHOLISM
     Dosage: 380 MG 1X/MONTH INTRAMUSCULAR
     Route: 030

REACTIONS (1)
  - APPENDICECTOMY [None]
